FAERS Safety Report 6684748-4 (Version None)
Quarter: 2010Q2

REPORT INFORMATION
  Report Type: 
  Country: None (occurrence: None)
  Receive Date: 20100416
  Receipt Date: 20100407
  Transmission Date: 20101027
  Serious: Yes (Hospitalization)
  Sender: FDA-Public Use
  Company Number: PL-JNJFOC-20100402354

PATIENT
  Sex: Female
  Weight: 25 kg

DRUGS (3)
  1. REMICADE [Suspect]
     Indication: CROHN'S DISEASE
     Route: 042
  2. IMURAN [Concomitant]
     Indication: CROHN'S DISEASE
     Route: 048
  3. ENCORTON [Concomitant]
     Indication: CROHN'S DISEASE
     Route: 048

REACTIONS (3)
  - GAIT DISTURBANCE [None]
  - MYALGIA [None]
  - TONSILLITIS STREPTOCOCCAL [None]
